FAERS Safety Report 6720195-4 (Version None)
Quarter: 2010Q2

REPORT INFORMATION
  Report Type: 
  Country: None (occurrence: None)
  Receive Date: 20100511
  Receipt Date: 20100505
  Transmission Date: 20101027
  Serious: Yes (Death)
  Sender: FDA-Public Use
  Company Number: US-ELI_LILLY_AND_COMPANY-US201005001800

PATIENT
  Sex: Male

DRUGS (1)
  1. GEMZAR [Suspect]
     Dates: start: 20100209

REACTIONS (1)
  - DEATH [None]
